FAERS Safety Report 26217782 (Version 1)
Quarter: 2025Q4

REPORT INFORMATION
  Report Type: Spontaneous
  Country: EU (occurrence: EU)
  Receive Date: 20251231
  Receipt Date: 20251231
  Transmission Date: 20260118
  Serious: Yes (Hospitalization, Other)
  Sender: MARKSANS PHARMA LIMITED
  Company Number: EU-MARKSANS PHARMA LIMITED-MPL202500126

PATIENT

DRUGS (3)
  1. FLUOXETINE HYDROCHLORIDE [Suspect]
     Active Substance: FLUOXETINE HYDROCHLORIDE
     Indication: Oppositional defiant disorder
     Dosage: 20 MILLIGRAM , QD (20 MG EVERY MORNING)
     Route: 065
     Dates: start: 202203
  2. FLUOXETINE HYDROCHLORIDE [Suspect]
     Active Substance: FLUOXETINE HYDROCHLORIDE
     Dosage: 30 MILLIGRAM, QD (DOSE INCREASED)
     Route: 065
     Dates: start: 202411, end: 202411
  3. HALOPERIDOL [Suspect]
     Active Substance: HALOPERIDOL
     Indication: Oppositional defiant disorder
     Dosage: 5 MILLIGRAM, SINGLE
     Route: 030
     Dates: start: 202411, end: 202411

REACTIONS (3)
  - Neuroleptic malignant syndrome [Recovered/Resolved]
  - Serotonin syndrome [Recovered/Resolved]
  - Product use in unapproved indication [Unknown]

NARRATIVE: CASE EVENT DATE: 20220301
